FAERS Safety Report 9546556 (Version 3)
Quarter: 2013Q3

REPORT INFORMATION
  Report Type: Report from Study
  Country: DE (occurrence: DE)
  Receive Date: 20130923
  Receipt Date: 20130925
  Transmission Date: 20140515
  Serious: Yes (Hospitalization, Other)
  Sender: FDA-Public Use
  Company Number: DE-ROCHE-523222

PATIENT
  Age: 62 Year
  Sex: Female
  Weight: 80 kg

DRUGS (7)
  1. PEG-INTERFERON ALFA 2A [Suspect]
     Indication: MALIGNANT MELANOMA
     Dosage: LAST DOSE PRIOR TO SAE WAS RECEIVED ON 26/JUN/2007.
     Route: 058
     Dates: start: 20061214, end: 20070626
  2. PEG-INTERFERON ALFA 2A [Suspect]
     Route: 058
     Dates: start: 20070717
  3. ASS [Concomitant]
     Route: 065
  4. NOVORAPID [Concomitant]
     Route: 065
  5. PROTAPHAN [Concomitant]
     Route: 065
  6. DUOTRAV [Concomitant]
     Dosage: DRUG NAME REPORTED AS DUOTRAV EYE DROPS.
     Route: 065
  7. COVERSUM COMBI [Concomitant]
     Indication: HYPERTENSION

REACTIONS (4)
  - Respiratory failure [Recovered/Resolved]
  - Pneumonia [Recovered/Resolved]
  - Acute myocardial infarction [Recovered/Resolved]
  - Urosepsis [Recovered/Resolved]
